FAERS Safety Report 8290075-4 (Version None)
Quarter: 2012Q2

REPORT INFORMATION
  Report Type: 
  Country: None (occurrence: None)
  Receive Date: 20120412
  Receipt Date: 20120412
  Transmission Date: 20120825
  Serious: Yes (Hospitalization)
  Sender: FDA-Public Use
  Company Number: None

PATIENT
  Sex: Female
  Weight: 110 kg

DRUGS (6)
  1. METHOTREXATE [Suspect]
     Dosage: 30 MG 15 MG INTRATHECAL
  2. CYTARABINE [Suspect]
     Dosage: 70 MG
  3. DAUNORUBICIN HCL [Suspect]
     Dosage: 232 MG DAYS 1,8,15,22
  4. VINCRISTINE SULFATE [Suspect]
     Dosage: 8 MG 2MG ON DAYS 1,8,15,22
  5. METHYLPREDNISOLONE [Suspect]
     Dosage: 3920 MG, 60 MG/M2 DAILY
  6. PEG-L ASPARAGINASE (K-H) [Suspect]
     Dosage: 5750 UNIT

REACTIONS (4)
  - HYPERGLYCAEMIA [None]
  - NAUSEA [None]
  - HEADACHE [None]
  - HYPOKALAEMIA [None]
